FAERS Safety Report 7614514-4 (Version None)
Quarter: 2011Q3

REPORT INFORMATION
  Report Type: 
  Country: None (occurrence: None)
  Receive Date: 20110708
  Receipt Date: 20110516
  Transmission Date: 20111222
  Serious: No
  Sender: FDA-Public Use
  Company Number: 2011IP000095

PATIENT
  Age: 54 Year
  Sex: Female
  Weight: 68.0396 kg

DRUGS (16)
  1. SALINE NASAL SPRAY [Concomitant]
  2. EYE RELIEF EYE WASH [Concomitant]
  3. REFRESH LIQUIGEL [Concomitant]
  4. CRESTOR [Concomitant]
  5. CALCIUM CITRATE + D [Concomitant]
  6. TRIPHALA [Concomitant]
  7. ASPIRIN LOW [Concomitant]
  8. VITAMIN D [Concomitant]
  9. OPTIVE [Concomitant]
  10. OMEPRAZOLE [Concomitant]
  11. BIOTIN [Concomitant]
  12. Z-BEC VITAMIN [Concomitant]
  13. GLUCOSAMINE SULFATE W/METHYLSULFONYLMETHANE [Concomitant]
  14. MAGNESIUM [Concomitant]
  15. ULTIMATE 10 PROBIOTIC [Concomitant]
  16. BEPREVE [Suspect]
     Indication: OFF LABEL USE
     Dosage: 1 GTT;BID;OPH
     Route: 047
     Dates: start: 20110307, end: 20110314

REACTIONS (1)
  - DRUG INEFFECTIVE [None]
